FAERS Safety Report 14252278 (Version 1)
Quarter: 2017Q4

REPORT INFORMATION
  Report Type: Spontaneous
  Country: BR (occurrence: BR)
  Receive Date: 20171205
  Receipt Date: 20171205
  Transmission Date: 20180321
  Serious: Yes (Hospitalization)
  Sender: FDA-Public Use
  Company Number: BR-SA-2017SA232653

PATIENT
  Sex: Female
  Weight: 70 kg

DRUGS (2)
  1. FLUOXETINE [Concomitant]
     Active Substance: FLUOXETINE HYDROCHLORIDE
     Indication: ANXIETY
     Route: 048
     Dates: start: 2016
  2. ZOLPIDEM TARTRATE. [Suspect]
     Active Substance: ZOLPIDEM TARTRATE
     Indication: INSOMNIA
     Route: 048

REACTIONS (5)
  - Medication error [Unknown]
  - Catheter placement [Unknown]
  - Somnolence [Not Recovered/Not Resolved]
  - Cardiac disorder [Unknown]
  - Infarction [Unknown]

NARRATIVE: CASE EVENT DATE: 20171118
